FAERS Safety Report 10405840 (Version 1)
Quarter: 2014Q3

REPORT INFORMATION
  Report Type: Spontaneous
  Country: DE (occurrence: DE)
  Receive Date: 20140825
  Receipt Date: 20140825
  Transmission Date: 20150326
  Serious: Yes (Other)
  Sender: FDA-Public Use
  Company Number: GXKR2014DE003072

PATIENT
  Sex: Female
  Weight: 80 kg

DRUGS (4)
  1. HEPAR SL [Concomitant]
     Route: 048
  2. SOLEDUM [Suspect]
     Active Substance: EUCALYPTOL
     Indication: SINUSITIS
     Dosage: 1 DF, TID
     Route: 048
     Dates: start: 20140704, end: 20140712
  3. VALSARTAN 1 A PHARMA PLUS [Suspect]
     Active Substance: VALSARTAN
     Dosage: 160 MG, BID (1-0-1)
     Route: 048
     Dates: start: 2013
  4. THYRONAJOD [Concomitant]
     Active Substance: LEVOTHYROXINE SODIUM\POTASSIUM IODIDE
     Dosage: 75 UG, QD (1-0-0)
     Route: 048

REACTIONS (5)
  - Blood pressure increased [Not Recovered/Not Resolved]
  - Dizziness [Not Recovered/Not Resolved]
  - Memory impairment [Not Recovered/Not Resolved]
  - Confusional state [Not Recovered/Not Resolved]
  - Headache [Not Recovered/Not Resolved]

NARRATIVE: CASE EVENT DATE: 20140710
